FAERS Safety Report 9935896 (Version 2)
Quarter: 2014Q1

REPORT INFORMATION
  Report Type: Spontaneous
  Country: US (occurrence: US)
  Receive Date: 20140228
  Receipt Date: 20140228
  Transmission Date: 20141002
  Serious: No
  Sender: FDA-Public Use
  Company Number: US-AMGEN-USASP2013068693

PATIENT
  Age: 38 Year
  Sex: Female
  Weight: 95.24 kg

DRUGS (8)
  1. ENBREL [Suspect]
     Indication: PSORIASIS
     Dosage: 50 MG, 2 TIMES/WK
     Route: 058
     Dates: start: 20130507, end: 20130806
  2. EFFEXOR [Concomitant]
     Dosage: 100 MG, UNK
  3. REQUIP [Concomitant]
     Dosage: 5 MG, UNK
  4. HUMIRA [Concomitant]
     Dosage: UNK
  5. IBUPROFEN [Concomitant]
     Dosage: UNK
  6. TRAMADOL [Concomitant]
     Dosage: UNK
  7. TYLENOL                            /00020001/ [Concomitant]
     Dosage: UNK
  8. CLARITIN                           /00917501/ [Concomitant]

REACTIONS (4)
  - Neck pain [Unknown]
  - Condition aggravated [Unknown]
  - Migraine [Unknown]
  - Headache [Recovering/Resolving]
